FAERS Safety Report 13775720 (Version 2)
Quarter: 2017Q3

REPORT INFORMATION
  Report Type: Report from Study
  Country: GB (occurrence: GB)
  Receive Date: 20170720
  Receipt Date: 20170803
  Transmission Date: 20171127
  Serious: Yes (Other)
  Sender: FDA-Public Use
  Company Number: GB-JNJFOC-20170714235

PATIENT

DRUGS (1)
  1. INFLIXIMAB, RECOMBINANT [Suspect]
     Active Substance: INFLIXIMAB
     Indication: RHEUMATOID ARTHRITIS
     Route: 042

REACTIONS (11)
  - Embolism [Unknown]
  - Oesophageal candidiasis [Unknown]
  - Infusion related reaction [Unknown]
  - Serum sickness [Unknown]
  - Clostridium difficile colitis [Unknown]
  - Drug level below therapeutic [Unknown]
  - Blood count abnormal [Unknown]
  - Infection [Unknown]
  - Nasopharyngitis [Unknown]
  - Upper respiratory tract infection [Unknown]
  - Drug specific antibody present [Unknown]
